FAERS Safety Report 4775663-1 (Version None)
Quarter: 2005Q3

REPORT INFORMATION
  Report Type: 
  Country: None (occurrence: None)
  Receive Date: 20050914
  Receipt Date: 20050316
  Transmission Date: 20060218
  Serious: Yes (Death)
  Sender: FDA-Public Use
  Company Number: 163-20785-05030434

PATIENT
  Age: 76 Year
  Sex: Female

DRUGS (2)
  1. THALOMID [Suspect]
     Indication: MYELODYSPLASTIC SYNDROME
     Dosage: 150 MG, QD, ORAL
     Route: 048
     Dates: start: 20040901, end: 20041201
  2. THALOMID [Suspect]
     Indication: OVARIAN CANCER
     Dosage: 150 MG, QD, ORAL
     Route: 048
     Dates: start: 20040901, end: 20041201

REACTIONS (3)
  - DEATH [None]
  - DISEASE PROGRESSION [None]
  - OVARIAN CANCER METASTATIC [None]
